FAERS Safety Report 15172664 (Version 1)
Quarter: 2018Q4

REPORT INFORMATION
  Report Type: Spontaneous
  Country: US (occurrence: US)
  Receive Date: 20180720
  Receipt Date: 20180720
  Transmission Date: 20190204
  Serious: No
  Sender: FDA-Public Use
  Company Number: US-SEPTODONT-201804625

PATIENT
  Age: 40 Year
  Sex: Female

DRUGS (2)
  1. ORAVERSE [Suspect]
     Active Substance: PHENTOLAMINE MESYLATE
     Indication: ANAESTHESIA REVERSAL
     Dosage: TWO X 1/2 CARTRIDGES (34 MG APPROXIMATELY PER TOOTH)
     Dates: start: 20180111, end: 20180111
  2. 4% ARTICAINE 1:100,000 LOCAL ANAESTHETIC SOLUTION [Suspect]
     Active Substance: ARTICAINE HYDROCHLORIDE\EPINEPHRINE BITARTRATE
     Indication: DENTAL LOCAL ANAESTHESIA
     Dosage: 2 X 34 MG APPROX PER TOOTH
     Dates: start: 20180111, end: 20180111

REACTIONS (2)
  - Burning sensation [Recovered/Resolved]
  - Lip swelling [Recovered/Resolved]

NARRATIVE: CASE EVENT DATE: 20180111
